FAERS Safety Report 4291604-8 (Version None)
Quarter: 2004Q1

REPORT INFORMATION
  Report Type: 
  Country: None (occurrence: None)
  Receive Date: 20040210
  Receipt Date: 20040210
  Transmission Date: 20041129
  Serious: Yes (Hospitalization)
  Sender: FDA-Public Use
  Company Number: None

PATIENT
  Age: 50 Year
  Sex: Female
  Weight: 74.3899 kg

DRUGS (2)
  1. PACLITAXEL [Suspect]
     Indication: BREAST CANCER METASTATIC
     Dosage: 136 MG IV WKLY, 119 MG IV (12/29 ONLY)
     Route: 042
     Dates: start: 20031014, end: 20031224
  2. PACLITAXEL [Suspect]
     Indication: METASTASES TO LIVER
     Dosage: 136 MG IV WKLY, 119 MG IV (12/29 ONLY)
     Route: 042
     Dates: start: 20031014, end: 20031224

REACTIONS (5)
  - ABDOMINAL DISTENSION [None]
  - ABDOMINAL PAIN [None]
  - CLOSTRIDIUM COLITIS [None]
  - CONSTIPATION [None]
  - DYSURIA [None]
